FAERS Safety Report 13790187 (Version 5)
Quarter: 2018Q2

REPORT INFORMATION
  Report Type: Spontaneous
  Country: CO (occurrence: CO)
  Receive Date: 20170725
  Receipt Date: 20180409
  Transmission Date: 20180711
  Serious: Yes (Other)
  Sender: FDA-Public Use
  Company Number: CO-PFIZER INC-2017321973

PATIENT
  Age: 15 Year
  Sex: Male
  Weight: 52.2 kg

DRUGS (4)
  1. GENOTROPIN [Suspect]
     Active Substance: SOMATROPIN
     Indication: BODY HEIGHT BELOW NORMAL
  2. GENOTROPIN [Suspect]
     Active Substance: SOMATROPIN
     Indication: HYPOTHALAMO-PITUITARY DISORDER
     Dosage: 1.4 MG, DAILY
     Dates: start: 201409, end: 201704
  3. GENOTROPIN [Suspect]
     Active Substance: SOMATROPIN
     Indication: GROWTH FAILURE
  4. GENOTROPIN [Suspect]
     Active Substance: SOMATROPIN
     Indication: PITUITARY HYPOPLASIA

REACTIONS (3)
  - Blood alkaline phosphatase increased [Unknown]
  - Sinusitis [Unknown]
  - Renal failure [Not Recovered/Not Resolved]

NARRATIVE: CASE EVENT DATE: 20151214
